FAERS Safety Report 5869754-1 (Version None)
Quarter: 2008Q3

REPORT INFORMATION
  Report Type: 
  Country: None (occurrence: None)
  Receive Date: 20080904
  Receipt Date: 20080820
  Transmission Date: 20090109
  Serious: Yes (Death, Other)
  Sender: FDA-Public Use
  Company Number: JP-ELI_LILLY_AND_COMPANY-JP200808004460

PATIENT
  Age: 65 Year
  Sex: Female

DRUGS (1)
  1. GEMZAR [Suspect]
     Indication: PANCREATIC CARCINOMA NON-RESECTABLE
     Dosage: 1500 MG, OTHER
     Route: 042

REACTIONS (5)
  - CHOLANGITIS [None]
  - GENERAL PHYSICAL HEALTH DETERIORATION [None]
  - JAUNDICE CHOLESTATIC [None]
  - MALAISE [None]
  - SEPTIC SHOCK [None]
